FAERS Safety Report 7179934-3 (Version None)
Quarter: 2010Q4

REPORT INFORMATION
  Report Type: 
  Country: None (occurrence: None)
  Receive Date: 20101221
  Receipt Date: 20101221
  Transmission Date: 20110411
  Serious: Yes (Hospitalization)
  Sender: FDA-Public Use
  Company Number: PHHO2005US13262

PATIENT
  Sex: Female
  Weight: 66.666 kg

DRUGS (5)
  1. FTY 720 FTY+CAP [Suspect]
     Indication: RENAL TRANSPLANT
     Dosage: 2.5 MG, UNK
     Route: 048
     Dates: start: 20040901
  2. NEORAL [Suspect]
     Indication: RENAL TRANSPLANT
     Dosage: 150 UNK, BID
     Route: 065
  3. PREDNISONE [Suspect]
     Indication: RENAL TRANSPLANT
     Dosage: NOT REPORTED
     Route: 065
  4. PREDNISONE [Suspect]
     Dosage: 20 MG, QD
     Route: 065
  5. PREDNISONE [Suspect]
     Dosage: 5 MG, QD
     Route: 065

REACTIONS (3)
  - ASTHMA [None]
  - DYSPNOEA [None]
  - PNEUMONIA [None]
